FAERS Safety Report 7273960-1 (Version None)
Quarter: 2011Q1

REPORT INFORMATION
  Report Type: 
  Country: None (occurrence: None)
  Receive Date: 20110203
  Receipt Date: 20110126
  Transmission Date: 20110831
  Serious: Yes (Other)
  Sender: FDA-Public Use
  Company Number: JP-MERCK-1008USA02649

PATIENT
  Age: 80 Year
  Sex: Female
  Weight: 48 kg

DRUGS (9)
  1. LANIRAPID [Concomitant]
     Indication: ATRIAL FIBRILLATION
     Route: 048
     Dates: start: 20080904
  2. VERAPAMIL HCL [Concomitant]
     Indication: ATRIAL FIBRILLATION
     Route: 048
     Dates: start: 20091228
  3. ASPIRIN [Concomitant]
     Indication: ATRIAL FIBRILLATION
     Route: 048
     Dates: start: 20080904
  4. OMEPRAZOLE [Concomitant]
     Route: 048
     Dates: start: 20080904
  5. MEVAN [Concomitant]
     Indication: DYSLIPIDAEMIA
     Route: 048
     Dates: start: 20081010
  6. XALATAN [Concomitant]
     Indication: GLAUCOMA
     Route: 047
     Dates: start: 20090214
  7. ALOSENN [Concomitant]
     Indication: CONSTIPATION
     Route: 048
  8. GASCON [Concomitant]
     Route: 048
  9. COZAAR [Suspect]
     Indication: HYPERTENSION
     Route: 048
     Dates: start: 20080904, end: 20100813

REACTIONS (1)
  - DRUG ERUPTION [None]
